FAERS Safety Report 9504201 (Version 1)
Quarter: 2013Q3

REPORT INFORMATION
  Report Type: Spontaneous
  Country: US (occurrence: None)
  Receive Date: 20130905
  Receipt Date: 20130905
  Transmission Date: 20140515
  Serious: Yes (Life-Threatening, Hospitalization)
  Sender: FDA-Public Use
  Company Number: None

PATIENT
  Age: 85 Year
  Sex: Male
  Weight: 90.9 kg

DRUGS (4)
  1. DILTIAZEM [Suspect]
     Indication: ATRIAL FIBRILLATION
     Route: 048
     Dates: start: 20130903, end: 20130903
  2. METOPROLOL [Suspect]
     Indication: ATRIAL FIBRILLATION
     Route: 048
     Dates: start: 20130831, end: 20130903
  3. MORPHINE SULFATE [Concomitant]
  4. HEPARIN [Concomitant]

REACTIONS (2)
  - Bradycardia [None]
  - Cardiac arrest [None]
